FAERS Safety Report 20512653 (Version 1)
Quarter: 2022Q1

REPORT INFORMATION
  Report Type: Spontaneous
  Country: FR (occurrence: FR)
  Receive Date: 20220224
  Receipt Date: 20220224
  Transmission Date: 20220423
  Serious: Yes (Hospitalization, Other)
  Sender: FDA-Public Use
  Company Number: FR-009507513-2202FRA005494

PATIENT
  Age: 58 Year
  Sex: Female

DRUGS (3)
  1. PEMBROLIZUMAB [Suspect]
     Active Substance: PEMBROLIZUMAB
     Indication: Colorectal cancer metastatic
     Dosage: 200 MG EVERY THREE WEEKS
     Route: 042
     Dates: start: 202011
  2. ENCORAFENIB [Suspect]
     Active Substance: ENCORAFENIB
     Indication: Colorectal cancer metastatic
     Dosage: 300 MG/DAY
     Dates: start: 202101
  3. CETUXIMAB [Suspect]
     Active Substance: CETUXIMAB
     Indication: Colorectal cancer metastatic
     Dosage: 500 MG EVERY 15 DAYS
     Route: 042
     Dates: start: 202101

REACTIONS (2)
  - Tumour pseudoprogression [Recovered/Resolved]
  - Tumour hyperprogression [Recovered/Resolved]

NARRATIVE: CASE EVENT DATE: 20200101
